FAERS Safety Report 19954255 (Version 1)
Quarter: 2021Q4

REPORT INFORMATION
  Report Type: Spontaneous
  Country: PT (occurrence: PT)
  Receive Date: 20211014
  Receipt Date: 20211014
  Transmission Date: 20220303
  Serious: Yes (Hospitalization, Other)
  Sender: FDA-Public Use
  Company Number: PT-MLMSERVICE-20211001-3142022-1

PATIENT
  Age: 26 Year
  Sex: Female

DRUGS (1)
  1. PHENYLEPHRINE HYDROCHLORIDE [Suspect]
     Active Substance: PHENYLEPHRINE HYDROCHLORIDE
     Indication: Product used for unknown indication
     Dosage: 2 MG INADVERTENTLY DUE TO A DILUTION ERROR

REACTIONS (13)
  - Nausea [Recovered/Resolved]
  - Hypotension [Recovered/Resolved]
  - Myocardial necrosis marker increased [Recovered/Resolved]
  - Acute pulmonary oedema [Recovered/Resolved]
  - Maternal exposure during pregnancy [Unknown]
  - Headache [Recovered/Resolved]
  - Ventricular hypokinesia [Recovered/Resolved]
  - Cough [Recovered/Resolved]
  - Pulmonary arterial wedge pressure increased [Recovered/Resolved]
  - Haemorrhage [Recovered/Resolved]
  - Bradycardia [Recovered/Resolved]
  - Product preparation issue [Unknown]
  - Sinus tachycardia [Recovered/Resolved]
